FAERS Safety Report 4744003-6 (Version None)
Quarter: 2005Q3

REPORT INFORMATION
  Report Type: 
  Country: None (occurrence: None)
  Receive Date: 20050809
  Receipt Date: 20050726
  Transmission Date: 20060218
  Serious: Yes (Other)
  Sender: FDA-Public Use
  Company Number: PHHO2005JP10574

PATIENT
  Age: 80 Year
  Sex: Female
  Weight: 46.9927 kg

DRUGS (5)
  1. VISUDYNE [Suspect]
     Indication: MACULAR DEGENERATION
     Dosage: 6 MG/M^2 ONCE IV
     Route: 042
     Dates: start: 20041105, end: 20041105
  2. ADONA AC-17 [Concomitant]
  3. CIRCULETIN [Concomitant]
  4. ALFAROL [Concomitant]
  5. ASPARA K [Concomitant]

REACTIONS (3)
  - DETACHMENT OF RETINAL PIGMENT EPITHELIUM [None]
  - VISUAL ACUITY REDUCED [None]
  - VISUAL FIELD DEFECT [None]
